FAERS Safety Report 22644533 (Version 1)
Quarter: 2023Q2

REPORT INFORMATION
  Report Type: Report from Study
  Country: US (occurrence: US)
  Receive Date: 20230627
  Receipt Date: 20230627
  Transmission Date: 20230722
  Serious: Yes (Death)
  Sender: FDA-Public Use
  Company Number: US-TEVA-2023-US-2899904

PATIENT
  Age: 59 Year
  Sex: Male

DRUGS (18)
  1. CARBOPLATIN [Suspect]
     Active Substance: CARBOPLATIN
     Indication: Malignant melanoma stage II
     Route: 065
  2. CARBOPLATIN [Suspect]
     Active Substance: CARBOPLATIN
     Indication: Malignant melanoma
  3. PREDNISONE [Suspect]
     Active Substance: PREDNISONE
     Indication: Malignant melanoma
     Route: 065
  4. PREDNISONE [Suspect]
     Active Substance: PREDNISONE
     Indication: Malignant melanoma stage II
  5. IPILIMUMAB [Suspect]
     Active Substance: IPILIMUMAB
     Indication: Malignant melanoma stage II
     Route: 065
  6. NIVOLUMAB [Suspect]
     Active Substance: NIVOLUMAB
     Indication: Malignant melanoma
  7. NIVOLUMAB [Suspect]
     Active Substance: NIVOLUMAB
     Indication: Malignant melanoma
     Route: 065
  8. NIVOLUMAB [Suspect]
     Active Substance: NIVOLUMAB
     Indication: Malignant melanoma stage II
  9. TALIMOGENE LAHERPAREPVEC [Suspect]
     Active Substance: TALIMOGENE LAHERPAREPVEC
     Indication: Malignant melanoma stage II
     Route: 065
  10. TALIMOGENE LAHERPAREPVEC [Suspect]
     Active Substance: TALIMOGENE LAHERPAREPVEC
     Indication: Malignant melanoma
  11. ALECTINIB [Suspect]
     Active Substance: ALECTINIB
     Indication: Malignant melanoma
     Route: 065
  12. ALECTINIB [Suspect]
     Active Substance: ALECTINIB
     Indication: Malignant melanoma stage II
  13. TAXOL [Suspect]
     Active Substance: PACLITAXEL
     Indication: Malignant melanoma stage II
     Route: 065
  14. TAXOL [Suspect]
     Active Substance: PACLITAXEL
     Indication: Malignant melanoma
  15. KITE-718 [Suspect]
     Active Substance: KITE-718
     Indication: Malignant melanoma
     Route: 065
  16. KITE-718 [Suspect]
     Active Substance: KITE-718
     Indication: Malignant melanoma stage II
  17. INFLIXIMAB [Suspect]
     Active Substance: INFLIXIMAB
     Indication: Malignant melanoma
     Route: 065
  18. INFLIXIMAB [Suspect]
     Active Substance: INFLIXIMAB
     Indication: Malignant melanoma stage II

REACTIONS (1)
  - Drug ineffective [Fatal]
